FAERS Safety Report 22101317 (Version 1)
Quarter: 2023Q1

REPORT INFORMATION
  Report Type: Spontaneous
  Country: IN (occurrence: IN)
  Receive Date: 20230316
  Receipt Date: 20230316
  Transmission Date: 20230417
  Serious: Yes (Death, Hospitalization, Other)
  Sender: FDA-Public Use
  Company Number: IN-STERISCIENCE B.V.-2023-ST-001018

PATIENT

DRUGS (9)
  1. MEROPENEM [Suspect]
     Active Substance: MEROPENEM
     Indication: Congenital syphilis
     Dosage: UNK
     Route: 042
  2. MEROPENEM [Suspect]
     Active Substance: MEROPENEM
     Indication: Sepsis neonatal
  3. PENICILLIN G BENZATHINE [Suspect]
     Active Substance: PENICILLIN G BENZATHINE
     Indication: Congenital syphilis
     Dosage: UNK
  4. PENICILLIN G BENZATHINE [Suspect]
     Active Substance: PENICILLIN G BENZATHINE
     Indication: Sepsis neonatal
  5. CEFTRIAXONE [Suspect]
     Active Substance: CEFTRIAXONE
     Indication: Congenital syphilis
     Dosage: UNK
     Route: 042
  6. CEFTRIAXONE [Suspect]
     Active Substance: CEFTRIAXONE
     Indication: Sepsis neonatal
  7. LINEZOLID [Suspect]
     Active Substance: LINEZOLID
     Indication: Congenital syphilis
     Dosage: UNK
     Route: 042
  8. LINEZOLID [Suspect]
     Active Substance: LINEZOLID
     Indication: Sepsis neonatal
  9. FRESH FROZEN PLASMA [Concomitant]
     Active Substance: HUMAN PLASMA
     Indication: Haemorrhage
     Dosage: UNK
     Route: 065

REACTIONS (1)
  - Drug ineffective [Fatal]
